FAERS Safety Report 11856290 (Version 3)
Quarter: 2016Q1

REPORT INFORMATION
  Report Type: Spontaneous
  Country: JP (occurrence: JP)
  Receive Date: 20151221
  Receipt Date: 20160202
  Transmission Date: 20160526
  Serious: Yes (Hospitalization)
  Sender: FDA-Public Use
  Company Number: JP-BAYER-2015-486920

PATIENT
  Age: 91 Year
  Sex: Female

DRUGS (4)
  1. FUROSEMIDE. [Concomitant]
     Active Substance: FUROSEMIDE
     Dosage: 20 MG, QD
     Route: 048
  2. ACETYLSALICYLIC ACID({=100 MG) [Suspect]
     Active Substance: ASPIRIN
     Dosage: 100 MG, QD
     Route: 048
  3. CALCIUM POLYSTYRENE SULFONATE [Suspect]
     Active Substance: CALCIUM POLYSTYRENE SULFONATE
     Dosage: 15 G, QD
     Route: 048
  4. MAGNESIUM OXIDE. [Concomitant]
     Active Substance: MAGNESIUM OXIDE
     Dosage: 990 MG, QD
     Route: 048

REACTIONS (3)
  - Large intestine perforation [Recovering/Resolving]
  - Peritonitis [Recovering/Resolving]
  - Septic shock [Recovering/Resolving]

NARRATIVE: CASE EVENT DATE: 20140225
